FAERS Safety Report 9241884 (Version 3)
Quarter: 2013Q2

REPORT INFORMATION
  Report Type: Report from Study
  Country: US (occurrence: US)
  Receive Date: 20130419
  Receipt Date: 20130521
  Transmission Date: 20140414
  Serious: Yes (Death, Other)
  Sender: FDA-Public Use
  Company Number: PHEH2013US008634

PATIENT
  Sex: Male

DRUGS (1)
  1. RECLAST [Suspect]
     Dosage: YEARLY
     Route: 042
     Dates: start: 20120410

REACTIONS (3)
  - Death [Fatal]
  - General physical health deterioration [Unknown]
  - Fall [Unknown]
